FAERS Safety Report 21950491 (Version 1)
Quarter: 2023Q1

REPORT INFORMATION
  Report Type: Spontaneous
  Country: US (occurrence: US)
  Receive Date: 20230203
  Receipt Date: 20230203
  Transmission Date: 20230417
  Serious: No
  Sender: FDA-Public Use
  Company Number: US-ORPHANEU-2020002901

PATIENT

DRUGS (1)
  1. CYSTADANE [Suspect]
     Active Substance: BETAINE
     Indication: Homocystinuria
     Dosage: 5 SCOOPS IN THE AM AND 6 SCOOPS IN THE EVENING

REACTIONS (5)
  - Nausea [Unknown]
  - Product dose omission issue [Unknown]
  - Abdominal distension [Unknown]
  - Anxiety [Unknown]
  - Gastric disorder [Unknown]
